FAERS Safety Report 22147631 (Version 4)
Quarter: 2023Q4

REPORT INFORMATION
  Report Type: Spontaneous
  Country: US (occurrence: US)
  Receive Date: 20230328
  Receipt Date: 20231208
  Transmission Date: 20240109
  Serious: Yes (Other)
  Sender: FDA-Public Use
  Company Number: US-MIRATI-MT2023PM03690

PATIENT

DRUGS (4)
  1. KRAZATI [Suspect]
     Active Substance: ADAGRASIB
     Indication: Colon cancer
     Dosage: 600 MG, BID
     Route: 048
     Dates: start: 20230316
  2. KRAZATI [Suspect]
     Active Substance: ADAGRASIB
     Indication: Colon cancer
     Dosage: 400 MG, BID
     Route: 048
     Dates: start: 202304, end: 20230807
  3. LISINOPRIL [Concomitant]
     Active Substance: LISINOPRIL
     Dosage: 30 MG
  4. PANTOPRAZOLE [Concomitant]
     Active Substance: PANTOPRAZOLE
     Dosage: 40 MG

REACTIONS (8)
  - Electrocardiogram QT prolonged [Not Recovered/Not Resolved]
  - Electrocardiogram QT prolonged [Unknown]
  - Diarrhoea [Unknown]
  - Fatigue [Not Recovered/Not Resolved]
  - Nausea [Unknown]
  - Vomiting [Unknown]
  - Off label use [Unknown]
  - Blood potassium decreased [Unknown]

NARRATIVE: CASE EVENT DATE: 20230316
